FAERS Safety Report 17972807 (Version 1)
Quarter: 2020Q3

REPORT INFORMATION
  Report Type: Spontaneous
  Country: US (occurrence: US)
  Receive Date: 20200701
  Receipt Date: 20200701
  Transmission Date: 20201103
  Serious: Yes (Death)
  Sender: FDA-Public Use
  Company Number: None

PATIENT
  Age: 47 Year
  Sex: Male

DRUGS (6)
  1. CYANOCOBALAM CRY 1GM [Concomitant]
  2. TIVICAY [Suspect]
     Active Substance: DOLUTEGRAVIR SODIUM
     Indication: RENAL TRANSPLANT
     Dosage: ?          OTHER FREQUENCY:TK 1 T PO QD;?
     Route: 048
     Dates: start: 20181108
  3. TYLENOL 500MG E/S (ACETAMINOPHEN) C [Concomitant]
  4. VITAMIN E 1000UNIT [Concomitant]
  5. FISH OIL 1000MG [Concomitant]
  6. VITAMIN D 1,000IU H/PTNCY [Concomitant]

REACTIONS (1)
  - Death [None]
